FAERS Safety Report 9170117 (Version 1)
Quarter: 2013Q1

REPORT INFORMATION
  Report Type: Spontaneous
  Country: US (occurrence: None)
  Receive Date: 20130307
  Receipt Date: 20130307
  Transmission Date: 20140127
  Serious: Yes (Disabling, Other)
  Sender: FDA-Public Use
  Company Number: 2013P1002803

PATIENT
  Age: 3 Year
  Sex: Male

DRUGS (5)
  1. DEXAMETHASONE [Suspect]
     Indication: ACUTE LYMPHOCYTIC LEUKAEMIA
  2. VINCRISTINE [Concomitant]
  3. PEGASPARGASE [Concomitant]
  4. IT CYTARBINE [Concomitant]
  5. IT METHOTREXATE [Concomitant]

REACTIONS (6)
  - Irritability [None]
  - Photophobia [None]
  - Visual acuity reduced [None]
  - Mydriasis [None]
  - Blindness unilateral [None]
  - Glaucoma [None]
